FAERS Safety Report 7247522-6 (Version None)
Quarter: 2011Q1

REPORT INFORMATION
  Report Type: 
  Country: None (occurrence: None)
  Receive Date: 20110127
  Receipt Date: 20110113
  Transmission Date: 20110831
  Serious: Yes (Hospitalization)
  Sender: FDA-Public Use
  Company Number: PHHY2011ES02642

PATIENT
  Age: 85 Year
  Sex: Female

DRUGS (1)
  1. KALPRESS PLUS [Suspect]
     Indication: HYPERTENSIVE HEART DISEASE
     Dosage: 160/25MG DAILY
     Route: 048
     Dates: start: 20091020, end: 20100930

REACTIONS (2)
  - ATRIOVENTRICULAR BLOCK [None]
  - ABDOMINAL PAIN UPPER [None]
